FAERS Safety Report 10770788 (Version 1)
Quarter: 2015Q1

REPORT INFORMATION
  Report Type: Spontaneous
  Country: US (occurrence: None)
  Receive Date: 20150206
  Receipt Date: 20150206
  Transmission Date: 20150721
  Serious: No
  Sender: FDA-Public Use
  Company Number: HYP201406-000032

PATIENT
  Age: 16 Year
  Sex: Female
  Weight: 59 kg

DRUGS (4)
  1. RAVICTI [Suspect]
     Active Substance: GLYCEROL PHENYLBUTYRATE
     Indication: UREA CYCLE ENZYME DEFICIENCY
     Dates: start: 201312, end: 2014
  2. CITRULLINE [Concomitant]
     Active Substance: CITRULLINE
  3. CYCLINEX 2 (ASCORBIC ACID, BIOTIN, CALCIUM, CHLORIDE, CHOLINE, CHROMIUM, COPPER, FOLIC ACID, INOSITOL, IODINE, IRON, LEVOCARNITINE, LINOLEIC ACID, MAGNESIUM, MANGANESE, MOLYBDENUM, NICOTINIC ACID, PANTOTHENIC ACID, PHOSPHORUS POTASSIUM, PYRIDOXINE HYDROCHLORIDE, RETINOL, RIBOFLAVIN, SELENIUM, SODIUM, THIAMINE, VITAMIN B12 NOS, VITAMIN D NOS, VITAMIN E NOS, VITAMIN K NOS, ZINC) [Concomitant]
  4. AMINO ACIDS [Concomitant]
     Active Substance: AMINO ACIDS

REACTIONS (7)
  - Decreased appetite [None]
  - Dehydration [None]
  - Abdominal pain upper [None]
  - Ammonia increased [None]
  - Liver function test abnormal [None]
  - Headache [None]
  - Vomiting [None]

NARRATIVE: CASE EVENT DATE: 201404
